FAERS Safety Report 8994872 (Version 1)
Quarter: 2012Q4

REPORT INFORMATION
  Report Type: Spontaneous
  Country: JP (occurrence: None)
  Receive Date: 20121221
  Receipt Date: 20121221
  Transmission Date: 20130627
  Serious: Yes (Other)
  Sender: FDA-Public Use
  Company Number: DSA_61491_2012

PATIENT

DRUGS (4)
  1. FLUOROURACIL (FLUOROURACIL) [Suspect]
     Indication: HYPOPHARYNGEAL CANCER
     Dosage: (DF)
  2. CISPLATIN [Suspect]
     Indication: HYPOPHARYNGEAL CANCER
     Dosage: (DF)
  3. TAXOTERE [Suspect]
     Indication: HYPOPHARYNGEAL CANCER
     Dosage: (DF)
  4. THERAPEUTIC RADIOPHARMACEUTICALS (THERAPEUTIC RADIOPHARMACEUTICALS) [Suspect]
     Indication: HYPOPHARYNGEAL CANCER
     Dosage: (DF)

REACTIONS (1)
  - Pharyngeal oedema [None]
